FAERS Safety Report 7443490-2 (Version None)
Quarter: 2011Q2

REPORT INFORMATION
  Report Type: 
  Country: None (occurrence: None)
  Receive Date: 20110420
  Receipt Date: 20110405
  Transmission Date: 20111010
  Serious: Yes (Hospitalization)
  Sender: FDA-Public Use
  Company Number: AUR-APL-2011-01214

PATIENT
  Age: 54 Year
  Sex: Male

DRUGS (7)
  1. ESOMEPRAZOLE [Concomitant]
  2. SERTRALINE HYDROCHLORIDE [Suspect]
  3. DOCUSATE [Concomitant]
  4. METOPROLOL SUCCINATE [Concomitant]
  5. LINEZOLID [Suspect]
     Indication: BACTERIAL INFECTION
     Dosage: INTRAVENOUS
     Route: 042
  6. TACROLIMUS [Suspect]
     Indication: IMMUNOSUPPRESSION
  7. COTRIM [Concomitant]

REACTIONS (17)
  - MENTAL STATUS CHANGES [None]
  - BALANCE DISORDER [None]
  - DRUG INTERACTION [None]
  - BILE DUCT STENOSIS [None]
  - PERITONEAL FLUID ANALYSIS ABNORMAL [None]
  - HALLUCINATION, VISUAL [None]
  - CANDIDIASIS [None]
  - FALL [None]
  - POST PROCEDURAL BILE LEAK [None]
  - ENTEROBACTER INFECTION [None]
  - RESTLESSNESS [None]
  - AGITATION [None]
  - AGGRESSION [None]
  - TOXICITY TO VARIOUS AGENTS [None]
  - LOCALISED INTRAABDOMINAL FLUID COLLECTION [None]
  - ENTEROCOCCAL INFECTION [None]
  - CONFUSIONAL STATE [None]
